FAERS Safety Report 18498718 (Version 1)
Quarter: 2020Q4

REPORT INFORMATION
  Report Type: Spontaneous
  Country: FR (occurrence: FR)
  Receive Date: 20201113
  Receipt Date: 20201113
  Transmission Date: 20210114
  Serious: Yes (Hospitalization, Other)
  Sender: FDA-Public Use
  Company Number: FR-AUROBINDO-AUR-APL-2020-055604

PATIENT
  Sex: Male
  Weight: 4 kg

DRUGS (2)
  1. CEFIXIME. [Suspect]
     Active Substance: CEFIXIME
     Indication: PRODUCT USED FOR UNKNOWN INDICATION
     Dosage: UNK
     Route: 065
  2. CEFPODOXIME MYLAN [Suspect]
     Active Substance: CEFPODOXIME
     Indication: EAR INFECTION
     Dosage: UNK
     Route: 065
     Dates: start: 20190921, end: 20190930

REACTIONS (3)
  - Neonatal respiratory distress [Recovered/Resolved]
  - Respiratory syncytial virus bronchiolitis [Recovered/Resolved]
  - Foetal exposure during pregnancy [Recovered/Resolved]

NARRATIVE: CASE EVENT DATE: 20191030
